FAERS Safety Report 5066622-2 (Version None)
Quarter: 2006Q3

REPORT INFORMATION
  Report Type: 
  Country: None (occurrence: None)
  Receive Date: 20060726
  Receipt Date: 20060710
  Transmission Date: 20061208
  Serious: Yes (Death)
  Sender: FDA-Public Use
  Company Number: 2005060572

PATIENT
  Age: 62 Year
  Sex: Male
  Weight: 106.1417 kg

DRUGS (3)
  1. CELEBREX [Suspect]
     Indication: ARTHRITIS
     Dosage: 200 MG (200 MG, 1 IN 1 D), ORAL
     Route: 048
     Dates: start: 20011008, end: 20020906
  2. BEXTRA [Suspect]
     Indication: ARTHRITIS
     Dosage: 10 MG (10 MG, 1 IN 1 D), UNKNOWN
     Dates: start: 20020906, end: 20030401
  3. VIOXX [Suspect]
     Indication: ARTHRITIS
     Dosage: (1 IN 1 D), ORAL
     Route: 048

REACTIONS (3)
  - BRAIN STEM SYNDROME [None]
  - CEREBROVASCULAR ACCIDENT [None]
  - RESPIRATORY DISTRESS [None]
